FAERS Safety Report 5705209-2 (Version None)
Quarter: 2008Q2

REPORT INFORMATION
  Report Type: 
  Country: None (occurrence: None)
  Receive Date: 20080410
  Receipt Date: 20080403
  Transmission Date: 20081010
  Serious: Yes (Hospitalization)
  Sender: FDA-Public Use
  Company Number: S08-USA-00862-01

PATIENT
  Age: 49 Year
  Sex: Male
  Weight: 79.3795 kg

DRUGS (2)
  1. LEXAPRO [Suspect]
     Indication: DEPRESSION
     Dosage: 10 MG QD;PO
     Route: 048
     Dates: start: 20071001, end: 20071001
  2. REBIF [Suspect]
     Indication: MULTIPLE SCLEROSIS
     Dosage: 8.8 MCG;TIW;
     Dates: start: 20071012

REACTIONS (7)
  - ABASIA [None]
  - ASTHENIA [None]
  - CONDITION AGGRAVATED [None]
  - DYSARTHRIA [None]
  - FURUNCLE [None]
  - MULTIPLE SCLEROSIS [None]
  - URINARY INCONTINENCE [None]
